FAERS Safety Report 10798279 (Version 2)
Quarter: 2015Q1

REPORT INFORMATION
  Report Type: Spontaneous
  Country: US (occurrence: US)
  Receive Date: 20150216
  Receipt Date: 20150319
  Transmission Date: 20150721
  Serious: Yes (Hospitalization, Other)
  Sender: FDA-Public Use
  Company Number: US-PFIZER INC-2015059051

PATIENT
  Age: 52 Year
  Sex: Female

DRUGS (1)
  1. CELEBREX [Suspect]
     Active Substance: CELECOXIB
     Indication: ARTHRALGIA
     Dosage: 200 MG, DAILY OR AS NEEDED
     Route: 048
     Dates: start: 20140630, end: 20140813

REACTIONS (10)
  - Nausea [Unknown]
  - Internal haemorrhage [Unknown]
  - Ulcer [Unknown]
  - Drug hypersensitivity [Unknown]
  - Dizziness [Unknown]
  - Fatigue [Unknown]
  - Acute kidney injury [Unknown]
  - Asthenia [Unknown]
  - Depression [Unknown]
  - Rectal haemorrhage [Unknown]

NARRATIVE: CASE EVENT DATE: 20140813
